FAERS Safety Report 7076863-0 (Version None)
Quarter: 2010Q4

REPORT INFORMATION
  Report Type: 
  Country: None (occurrence: None)
  Receive Date: 20101101
  Receipt Date: 20101020
  Transmission Date: 20110411
  Serious: Yes (Hospitalization)
  Sender: FDA-Public Use
  Company Number: US-BAYER-201012585NA

PATIENT
  Age: 23 Year
  Sex: Female
  Weight: 70 kg

DRUGS (8)
  1. YAZ [Suspect]
     Indication: CONTRACEPTION
     Route: 048
     Dates: start: 20081209, end: 20090403
  2. NAPROXEN [Concomitant]
     Dosage: TOTAL DAILY DOSE: 1 G  UNIT DOSE: 500 MG
     Route: 048
     Dates: start: 20090403
  3. ELIDEL [Concomitant]
     Dates: start: 20081114
  4. HYDROXYZINE HCL [Concomitant]
     Indication: PRURITUS
     Route: 048
     Dates: start: 20090223
  5. ORTHO EVRA [Concomitant]
     Dosage: 150-20 MCG
     Dates: start: 20090605
  6. BACTRIM DS [Concomitant]
     Indication: URINARY TRACT INFECTION
     Dosage: 800-160MG
     Route: 048
     Dates: start: 20090612
  7. ANTIBIOTICS [Concomitant]
  8. IBUPROFEN [Concomitant]

REACTIONS (10)
  - ABDOMINAL DISTENSION [None]
  - ABDOMINAL PAIN [None]
  - ABDOMINAL PAIN UPPER [None]
  - CHOLECYSTITIS CHRONIC [None]
  - CHOLELITHIASIS [None]
  - DIZZINESS [None]
  - FAT INTOLERANCE [None]
  - NAUSEA [None]
  - PAIN [None]
  - VOMITING [None]
